FAERS Safety Report 7518592-2 (Version None)
Quarter: 2011Q2

REPORT INFORMATION
  Report Type: 
  Country: None (occurrence: None)
  Receive Date: 20110602
  Receipt Date: 20110526
  Transmission Date: 20111010
  Serious: Yes (Hospitalization, Other)
  Sender: FDA-Public Use
  Company Number: IN-PFIZER INC-2011105808

PATIENT
  Age: 42 Year
  Sex: Male

DRUGS (11)
  1. WARFARIN SODIUM [Interacting]
     Indication: DEEP VEIN THROMBOSIS
  2. QUETIAPINE [Interacting]
     Indication: SCHIZOPHRENIA
  3. CITALOPRAM HYDROBROMIDE [Interacting]
     Indication: SCHIZOPHRENIA
  4. ASPIRIN [Interacting]
     Indication: DEEP VEIN THROMBOSIS
  5. ATORVASTATIN CALCIUM [Suspect]
     Indication: DYSLIPIDAEMIA
  6. FENOFIBRATE [Interacting]
     Indication: DYSLIPIDAEMIA
  7. QUETIAPINE [Interacting]
     Indication: DEPRESSION
  8. PROPRANOLOL [Interacting]
     Indication: DEPRESSION
  9. CITALOPRAM HYDROBROMIDE [Interacting]
     Indication: DEPRESSION
  10. DICLOFENAC SODIUM [Interacting]
     Indication: PAIN IN EXTREMITY
  11. PROPRANOLOL [Interacting]
     Indication: SCHIZOPHRENIA

REACTIONS (5)
  - EXTRADURAL HAEMATOMA [None]
  - HYPOVOLAEMIC SHOCK [None]
  - MUCOSAL HAEMORRHAGE [None]
  - DRUG INTERACTION [None]
  - SPINAL EPIDURAL HAEMORRHAGE [None]
